FAERS Safety Report 6004755-4 (Version None)
Quarter: 2008Q4

REPORT INFORMATION
  Report Type: 
  Country: None (occurrence: None)
  Receive Date: 20081216
  Receipt Date: 20081209
  Transmission Date: 20090506
  Serious: No
  Sender: FDA-Public Use
  Company Number: PL-B.I. PHARMACEUTICALS,INC./RIDGEFIELD-2008-AP-00263AP

PATIENT
  Sex: Male
  Weight: 85 kg

DRUGS (5)
  1. SPIRIVA [Suspect]
     Indication: CHRONIC OBSTRUCTIVE PULMONARY DISEASE
     Dosage: 18MCG
     Route: 055
     Dates: start: 20081002, end: 20081014
  2. ATENDOL [Concomitant]
     Route: 048
  3. NITRENDYPINE [Concomitant]
     Route: 048
  4. ENARENAL [Concomitant]
     Route: 048
  5. OXODIL [Concomitant]
     Indication: CHRONIC OBSTRUCTIVE PULMONARY DISEASE
     Dosage: 24MCG
     Route: 055

REACTIONS (3)
  - BONE PAIN [None]
  - HAEMOPTYSIS [None]
  - PALPITATIONS [None]
